FAERS Safety Report 8218602-3 (Version None)
Quarter: 2012Q1

REPORT INFORMATION
  Report Type: 
  Country: None (occurrence: None)
  Receive Date: 20120319
  Receipt Date: 20120307
  Transmission Date: 20120608
  Serious: Yes (Hospitalization)
  Sender: FDA-Public Use
  Company Number: JP-TEVA-2011006351

PATIENT
  Sex: Male

DRUGS (16)
  1. ZONISAMIDE [Concomitant]
     Dates: start: 20111118
  2. SULFAMETHOXAZOLE AND TRIMETHOPRIM [Concomitant]
     Dates: start: 20111118
  3. MAGNESIUM OXIDE [Concomitant]
     Dates: start: 20111118
  4. PREDNISOLONE [Concomitant]
     Dates: start: 20111118
  5. RITUXIMAB [Concomitant]
     Dates: start: 20111005, end: 20111209
  6. LEVODOPA BENSERAZIDE HYDROCHLO [Concomitant]
     Dates: start: 20111214
  7. SOLIFENACIN SUCCINATE [Concomitant]
     Dates: start: 20111118
  8. RISEDRONATE SODIUM [Concomitant]
     Dates: start: 20111118
  9. FUROSEMIDE [Concomitant]
     Dates: start: 20111214
  10. TAMSULOSIN HCL [Concomitant]
  11. BENDAMUSTINE [Suspect]
     Route: 042
     Dates: start: 20111212, end: 20111213
  12. REBAMIPIDE [Concomitant]
     Dates: start: 20111118
  13. FAMOTIDINE [Concomitant]
     Dates: start: 20111118
  14. BENDAMUSTINE [Suspect]
     Indication: MANTLE CELL LYMPHOMA
     Route: 042
     Dates: start: 20111006, end: 20111007
  15. BENDAMUSTINE [Suspect]
     Route: 042
     Dates: start: 20111107, end: 20111108
  16. DIPHENHYDRAMINE HCL [Concomitant]
     Dates: start: 20111208

REACTIONS (2)
  - ILEUS [None]
  - PNEUMONIA ASPIRATION [None]
